FAERS Safety Report 10627595 (Version 1)
Quarter: 2014Q4

REPORT INFORMATION
  Report Type: Report from Study
  Country: NL (occurrence: NL)
  Receive Date: 20141205
  Receipt Date: 20141205
  Transmission Date: 20150529
  Serious: Yes (Hospitalization, Other)
  Sender: FDA-Public Use
  Company Number: NL-AMGEN-NLDSL2012086763

PATIENT
  Age: 65 Year
  Sex: Female

DRUGS (2)
  1. NEULASTA [Suspect]
     Active Substance: PEGFILGRASTIM
     Indication: PRODUCT USED FOR UNKNOWN INDICATION
     Dosage: 0.6 ML (10MG/ML), Q3WK
     Route: 065
     Dates: start: 20121024
  2. ARANESP [Suspect]
     Active Substance: DARBEPOETIN ALFA
     Indication: PRODUCT USED FOR UNKNOWN INDICATION
     Dosage: 1 ML (500MCG/ML), Q3WK
     Route: 065
     Dates: start: 20121024

REACTIONS (11)
  - Fatigue [Unknown]
  - Malaise [Unknown]
  - Pain [Unknown]
  - Hospitalisation [Unknown]
  - Anaemia [Unknown]
  - Blood glucose abnormal [Unknown]
  - Influenza [Unknown]
  - Cough [Unknown]
  - Decreased appetite [Unknown]
  - Pneumonia [Unknown]
  - Limb discomfort [Unknown]
